FAERS Safety Report 8813822 (Version 1)
Quarter: 2012Q4

REPORT INFORMATION
  Report Type: 
  Country: US (occurrence: US)
  Receive Date: 20120928
  Receipt Date: 20120928
  Transmission Date: 20130627
  Serious: No
  Sender: FDA-Public Use
  Company Number: US-BIOGENIDEC-2012BI040270

PATIENT
  Age: 59 Year
  Sex: Female

DRUGS (1)
  1. TYSABRI [Suspect]
     Indication: MULTIPLE SCLEROSIS
     Route: 042
     Dates: start: 20120725

REACTIONS (5)
  - Body temperature increased [Recovered/Resolved]
  - Muscle spasms [Recovered/Resolved]
  - Contusion [Recovered/Resolved]
  - Pyrexia [Unknown]
  - Dyskinesia [Unknown]
